FAERS Safety Report 7543271-5 (Version None)
Quarter: 2011Q2

REPORT INFORMATION
  Report Type: 
  Country: None (occurrence: None)
  Receive Date: 20110525
  Receipt Date: 20110519
  Transmission Date: 20111010
  Serious: Yes (Hospitalization)
  Sender: FDA-Public Use
  Company Number: 2011028636

PATIENT
  Age: 47 Year
  Sex: Male
  Weight: 86.637 kg

DRUGS (4)
  1. PRILOSEC [Concomitant]
  2. SPIRIVA [Concomitant]
  3. ZEMAIRA [Suspect]
     Indication: ALPHA-1 ANTI-TRYPSIN DEFICIENCY
     Dosage: ( 60 MG/KG 1X/WEEK, 1033 MG VIAL; 0.08 ML/KG/MIN (6.9 ML/MIN) INTRAVENOUS (NOT OTHERWISE SPECIFIED))
     Route: 042
     Dates: start: 20070307
  4. MUCINEX [Concomitant]

REACTIONS (5)
  - FEELING ABNORMAL [None]
  - ASTHENIA [None]
  - DYSPEPSIA [None]
  - CHEST DISCOMFORT [None]
  - BLOOD PRESSURE INCREASED [None]
